FAERS Safety Report 7452362-9 (Version None)
Quarter: 2011Q2

REPORT INFORMATION
  Report Type: 
  Country: None (occurrence: None)
  Receive Date: 20110502
  Receipt Date: 20110428
  Transmission Date: 20111010
  Serious: Yes (Hospitalization, Disabling)
  Sender: FDA-Public Use
  Company Number: TR-US-EMD SERONO, INC.-7056197

PATIENT
  Sex: Female
  Weight: 83 kg

DRUGS (1)
  1. REBIF [Suspect]
     Indication: MULTIPLE SCLEROSIS
     Route: 058
     Dates: start: 20070501, end: 20110423

REACTIONS (4)
  - CEREBRAL VASOCONSTRICTION [None]
  - INFECTION [None]
  - DRUG INEFFECTIVE [None]
  - GAIT DISTURBANCE [None]
